FAERS Safety Report 9917748 (Version 2)
Quarter: 2014Q1

REPORT INFORMATION
  Report Type: Report from Study
  Country: US (occurrence: US)
  Receive Date: 20140221
  Receipt Date: 20140221
  Transmission Date: 20141002
  Serious: Yes (Hospitalization)
  Sender: FDA-Public Use
  Company Number: US-SA-200415366US

PATIENT
  Age: 68 Year
  Sex: Female
  Weight: 92.3 kg

DRUGS (13)
  1. DOCETAXEL [Suspect]
     Indication: BREAST CANCER
     Route: 042
     Dates: start: 20030418, end: 20030418
  2. DOCETAXEL [Suspect]
     Indication: BREAST CANCER
     Route: 042
     Dates: start: 20030807, end: 20030807
  3. CARBOPLATIN [Suspect]
     Indication: BREAST CANCER
     Dosage: DOSE AS USED: AUC=6 MG/ML
     Route: 042
     Dates: start: 20030418, end: 20030418
  4. CARBOPLATIN [Suspect]
     Indication: BREAST CANCER
     Dosage: DOSE AS USED: AUC=6 MG/ML
     Route: 042
     Dates: start: 20030807, end: 20030807
  5. TRASTUZUMAB [Suspect]
     Indication: BREAST CANCER
     Route: 042
     Dates: start: 20030417, end: 20030807
  6. TRASTUZUMAB [Suspect]
     Indication: BREAST CANCER
     Route: 042
     Dates: start: 20030828, end: 20030828
  7. TRASTUZUMAB [Suspect]
     Indication: BREAST CANCER
     Route: 042
     Dates: start: 20040421, end: 20040421
  8. GLYBURIDE [Concomitant]
     Indication: DIABETES MELLITUS
     Route: 048
     Dates: start: 2003
  9. DILTIAZEM [Concomitant]
     Indication: HYPERTENSION
     Route: 048
     Dates: start: 200308
  10. LEVOTHYROXINE [Concomitant]
     Indication: HYPOTHYROIDISM
     Dates: start: 1972
  11. PRAVACHOL [Concomitant]
     Indication: BLOOD CHOLESTEROL INCREASED
     Dates: start: 20030725
  12. MAXZIDE [Concomitant]
     Indication: OEDEMA
     Dosage: DOSE AS USED: 75/50 MG
     Route: 048
  13. PAXIL [Concomitant]
     Indication: ANXIETY
     Route: 048
     Dates: start: 20030625

REACTIONS (6)
  - Aortic valve stenosis [Recovered/Resolved]
  - Syncope [Recovered/Resolved]
  - Bradycardia [Recovered/Resolved]
  - Ejection fraction decreased [Recovered/Resolved]
  - Humerus fracture [Recovered/Resolved]
  - Urinary tract infection [Recovered/Resolved]
